FAERS Safety Report 6669584-7 (Version None)
Quarter: 2010Q2

REPORT INFORMATION
  Report Type: 
  Country: None (occurrence: None)
  Receive Date: 20100406
  Receipt Date: 20100325
  Transmission Date: 20101027
  Serious: Yes (Other)
  Sender: FDA-Public Use
  Company Number: US-PFIZER INC-2010039101

PATIENT
  Age: 50 Year
  Sex: Male

DRUGS (1)
  1. SUNITINIB MALATE [Suspect]
     Indication: THYROID CANCER
     Dosage: 50 MG, FOR 4 WEEKS
     Route: 048
     Dates: start: 20071023, end: 20100311

REACTIONS (1)
  - LARYNGEAL OEDEMA [None]
